FAERS Safety Report 7051625-9 (Version None)
Quarter: 2010Q4

REPORT INFORMATION
  Report Type: 
  Country: None (occurrence: None)
  Receive Date: 20101019
  Receipt Date: 20101013
  Transmission Date: 20110411
  Serious: No
  Sender: FDA-Public Use
  Company Number: BR-ROCHE-724980

PATIENT
  Sex: Female
  Weight: 66 kg

DRUGS (2)
  1. ROACUTAN [Suspect]
     Indication: ACNE
     Dosage: DOSE: 2 CAPS/DAY
     Route: 048
     Dates: start: 20100818, end: 20100825
  2. FLUOXETINE [Concomitant]
     Indication: ANXIETY
     Route: 048

REACTIONS (2)
  - NO ADVERSE EVENT [None]
  - PREGNANCY [None]
